FAERS Safety Report 8287836-4 (Version None)
Quarter: 2012Q2

REPORT INFORMATION
  Report Type: 
  Country: None (occurrence: None)
  Receive Date: 20120416
  Receipt Date: 20120410
  Transmission Date: 20120825
  Serious: Yes (Disabling, Other)
  Sender: FDA-Public Use
  Company Number: US-PFIZER INC-2012089775

PATIENT
  Sex: Male
  Weight: 136.5 kg

DRUGS (1)
  1. DILANTIN [Suspect]
     Indication: CONVULSION
     Dosage: 100 MG, UNK
     Route: 048
     Dates: start: 19970101

REACTIONS (3)
  - INJURY [None]
  - SPLENIC HAEMORRHAGE [None]
  - ABSCESS [None]
